FAERS Safety Report 9098031 (Version 1)
Quarter: 2013Q1

REPORT INFORMATION
  Report Type: Report from Study
  Country: BE (occurrence: BE)
  Receive Date: 20130212
  Receipt Date: 20130212
  Transmission Date: 20140127
  Serious: Yes (Death)
  Sender: FDA-Public Use
  Company Number: BE-ROCHE-1189463

PATIENT
  Age: 75 Year
  Sex: Female
  Weight: 48 kg

DRUGS (3)
  1. AVASTIN [Suspect]
     Indication: OVARIAN CANCER
     Route: 065
     Dates: start: 20121029, end: 20130128
  2. TAXOL [Concomitant]
     Indication: OVARIAN CANCER
     Route: 065
     Dates: end: 20121119
  3. CARBOPLATIN [Concomitant]
     Indication: OVARIAN CANCER
     Dosage: AUC 2
     Route: 065
     Dates: end: 20121119

REACTIONS (1)
  - Death [Fatal]
